FAERS Safety Report 10785528 (Version 1)
Quarter: 2015Q1

REPORT INFORMATION
  Report Type: Spontaneous
  Country: JP (occurrence: None)
  Receive Date: 20150209
  Receipt Date: 20150209
  Transmission Date: 20150721
  Serious: No
  Sender: FDA-Public Use
  Company Number: JP2015GSK010309

PATIENT
  Age: 76 Year
  Sex: Male

DRUGS (3)
  1. QUAZEPAM. [Concomitant]
     Active Substance: QUAZEPAM
  2. PAROXETINE [Suspect]
     Active Substance: PAROXETINE\PAROXETINE HYDROCHLORIDE
     Indication: DEPRESSION
  3. ALPRAZOLAM. [Concomitant]
     Active Substance: ALPRAZOLAM

REACTIONS (5)
  - Status epilepticus [None]
  - Altered state of consciousness [None]
  - Tremor [None]
  - Motor dysfunction [None]
  - Electroencephalogram abnormal [None]
